FAERS Safety Report 14295477 (Version 1)
Quarter: 2017Q4

REPORT INFORMATION
  Report Type: Spontaneous
  Country: US (occurrence: US)
  Receive Date: 20171215
  Receipt Date: 20171215
  Transmission Date: 20180321
  Serious: Yes (Hospitalization)
  Sender: FDA-Public Use
  Company Number: None

PATIENT
  Sex: Female
  Weight: 70.3 kg

DRUGS (1)
  1. XELODA [Suspect]
     Active Substance: CAPECITABINE
     Dates: end: 20171211

REACTIONS (4)
  - Pyelonephritis [None]
  - Urosepsis [None]
  - Hydronephrosis [None]
  - Tachycardia [None]

NARRATIVE: CASE EVENT DATE: 20171211
